FAERS Safety Report 5145696-4 (Version None)
Quarter: 2006Q4

REPORT INFORMATION
  Report Type: 
  Country: None (occurrence: None)
  Receive Date: 20060906
  Receipt Date: 20060606
  Transmission Date: 20070319
  Serious: Yes (Hospitalization)
  Sender: FDA-Public Use
  Company Number: WAES 0606USA00966

PATIENT
  Age: 32 Year
  Sex: Female

DRUGS (1)
  1. MAXALT [Suspect]
     Indication: MIGRAINE
     Dosage: 10 MG/PO
     Route: 048
     Dates: start: 20020601

REACTIONS (1)
  - MYOCARDIAL INFARCTION [None]
